FAERS Safety Report 15650225 (Version 3)
Quarter: 2019Q1

REPORT INFORMATION
  Report Type: Report from Study
  Country: KR (occurrence: KR)
  Receive Date: 20181123
  Receipt Date: 20190208
  Transmission Date: 20190417
  Serious: Yes (Hospitalization, Other)
  Sender: FDA-Public Use
  Company Number: KR-BRISTOL-MYERS SQUIBB COMPANY-BMS-2018-108739

PATIENT
  Age: 60 Year
  Sex: Male
  Weight: 64 kg

DRUGS (2)
  1. NIVOLUMAB [Suspect]
     Active Substance: NIVOLUMAB
     Indication: NON-SMALL CELL LUNG CANCER
     Dosage: 1 DF, Q2WK
     Route: 041
     Dates: start: 20180110, end: 20180814
  2. NIVOLUMAB [Suspect]
     Active Substance: NIVOLUMAB
     Indication: PRODUCT USED FOR UNKNOWN INDICATION
     Dosage: 1 DF, Q2WK
     Route: 041
     Dates: start: 20180828, end: 20181025

REACTIONS (6)
  - Liver function test abnormal [Recovered/Resolved]
  - Diabetes mellitus [Not Recovered/Not Resolved]
  - Metabolic acidosis [Unknown]
  - Aspartate aminotransferase increased [Recovered/Resolved]
  - Pleural effusion [Recovered/Resolved with Sequelae]
  - Cough [Recovered/Resolved]

NARRATIVE: CASE EVENT DATE: 20180207
